FAERS Safety Report 24612607 (Version 1)
Quarter: 2024Q4

REPORT INFORMATION
  Report Type: Spontaneous
  Country: CN (occurrence: CN)
  Receive Date: 20241113
  Receipt Date: 20241113
  Transmission Date: 20250115
  Serious: Yes (Other)
  Sender: AZURITY PHARMACEUTICALS
  Company Number: CN-AZURITY PHARMACEUTICALS, INC.-AZR202410-001015

PATIENT
  Age: 52 Year
  Sex: Male

DRUGS (10)
  1. VANCOMYCIN HYDROCHLORIDE [Suspect]
     Active Substance: VANCOMYCIN HYDROCHLORIDE
     Indication: Brain abscess
     Dosage: 1 GRAM, Q12H (EVERY 12 HOURS)
     Route: 042
  2. MEROPENEM [Suspect]
     Active Substance: MEROPENEM
     Indication: Brain abscess
     Dosage: 2 GRAM, Q8H (EVERY 8 HOURS)
     Route: 042
  3. CEFTRIAXONE [Concomitant]
     Active Substance: CEFTRIAXONE
     Indication: Brain abscess
     Dosage: UNK
     Route: 065
  4. MANNITOL [Concomitant]
     Active Substance: MANNITOL
     Indication: Brain abscess
     Dosage: UNK
     Route: 065
  5. MANNITOL [Concomitant]
     Active Substance: MANNITOL
     Indication: Cerebral infarction
  6. MANNITOL [Concomitant]
     Active Substance: MANNITOL
     Indication: Neoplasm
  7. VALPROATE SODIUM [Concomitant]
     Active Substance: VALPROATE SODIUM
     Indication: Seizure
     Dosage: UNK
     Route: 065
  8. Xianfang Huoming Yin [Concomitant]
     Indication: Brain abscess
     Dosage: UNK
     Route: 065
     Dates: start: 202302
  9. Angong Niuhuang Pill [Concomitant]
     Indication: Brain abscess
     Dosage: UNK
     Route: 065
     Dates: start: 202302
  10. Antelope horn powder [Concomitant]
     Indication: Brain abscess
     Dosage: UNK
     Route: 065
     Dates: start: 202302

REACTIONS (3)
  - Agranulocytosis [Recovered/Resolved]
  - Leukopenia [Recovered/Resolved]
  - Neutropenia [Recovered/Resolved]
